FAERS Safety Report 24045422 (Version 1)
Quarter: 2024Q3

REPORT INFORMATION
  Report Type: Spontaneous
  Country: US (occurrence: US)
  Receive Date: 20240703
  Receipt Date: 20240703
  Transmission Date: 20241016
  Serious: No
  Sender: ABBVIE
  Company Number: US-ABBVIE-5822745

PATIENT
  Sex: Female

DRUGS (2)
  1. PREDNISOLONE [Suspect]
     Active Substance: PREDNISOLONE
     Indication: Product used for unknown indication
     Dosage: FORM STRENGTH: 5 MG
     Route: 047
     Dates: start: 20240701
  2. PREDNISOLONE [Suspect]
     Active Substance: PREDNISOLONE
     Dosage: FORM STRENGTH: 5 MG
     Route: 047

REACTIONS (3)
  - Eye infection [Unknown]
  - Eye pain [Unknown]
  - Device issue [Not Recovered/Not Resolved]
